FAERS Safety Report 5974741-9 (Version None)
Quarter: 2008Q4

REPORT INFORMATION
  Report Type: 
  Country: None (occurrence: None)
  Receive Date: 20081201
  Receipt Date: 20080206
  Transmission Date: 20090506
  Serious: No
  Sender: FDA-Public Use
  Company Number: US-AMGEN-KDL261724

PATIENT
  Sex: Female
  Weight: 68.1 kg

DRUGS (5)
  1. ENBREL [Suspect]
     Indication: RHEUMATOID ARTHRITIS
     Route: 058
     Dates: start: 20061201
  2. ACIPHEX [Concomitant]
  3. LIPITOR [Concomitant]
  4. ORTHO TRI-CYCLEN (ORTHO-MCNEIL) [Concomitant]
  5. SYNTHROID [Concomitant]

REACTIONS (3)
  - COUGH [None]
  - OROPHARYNGEAL PAIN [None]
  - URINARY TRACT INFECTION [None]
